FAERS Safety Report 22345911 (Version 2)
Quarter: 2023Q2

REPORT INFORMATION
  Report Type: Spontaneous
  Country: US (occurrence: US)
  Receive Date: 20230519
  Receipt Date: 20230522
  Transmission Date: 20230721
  Serious: No
  Sender: FDA-Public Use
  Company Number: US-BRISTOL-MYERS SQUIBB COMPANY-2023-071260

PATIENT

DRUGS (9)
  1. ELIQUIS [Suspect]
     Active Substance: APIXABAN
     Indication: Product used for unknown indication
  2. ASPIRIN [Concomitant]
     Active Substance: ASPIRIN
     Indication: Musculoskeletal stiffness
  3. ASPIRIN [Concomitant]
     Active Substance: ASPIRIN
     Indication: Pain
  4. ALEVE [Concomitant]
     Active Substance: NAPROXEN SODIUM
     Indication: Musculoskeletal stiffness
  5. ALEVE [Concomitant]
     Active Substance: NAPROXEN SODIUM
     Indication: Pain
  6. FISH OIL [Concomitant]
     Active Substance: FISH OIL
     Indication: Pain
  7. FISH OIL [Concomitant]
     Active Substance: FISH OIL
     Indication: Musculoskeletal stiffness
  8. TYLENOL [Concomitant]
     Active Substance: ACETAMINOPHEN
     Indication: Pain
  9. TYLENOL [Concomitant]
     Active Substance: ACETAMINOPHEN
     Indication: Musculoskeletal stiffness

REACTIONS (2)
  - Pain [Unknown]
  - Musculoskeletal stiffness [Unknown]
